FAERS Safety Report 9078197 (Version 1)
Quarter: 2013Q1

REPORT INFORMATION
  Report Type: Report from Study
  Country: US (occurrence: US)
  Receive Date: 20130130
  Receipt Date: 20130130
  Transmission Date: 20140127
  Serious: No
  Sender: FDA-Public Use
  Company Number: US-ABBOTT-12P-163-0977431-00

PATIENT
  Age: 31 Year
  Sex: Female

DRUGS (3)
  1. HUMIRA [Suspect]
     Indication: CROHN^S DISEASE
     Dosage: 160MG  DAY ONE
     Dates: start: 20120821
  2. HUMIRA [Suspect]
     Dosage: 80MG DAY 15
  3. UNKNOWN BIRTH CONTROL PILL [Concomitant]
     Indication: PROPHYLAXIS
     Dosage: DAILY

REACTIONS (2)
  - Drug ineffective [Not Recovered/Not Resolved]
  - Arthralgia [Unknown]
